FAERS Safety Report 4816136-7 (Version None)
Quarter: 2005Q4

REPORT INFORMATION
  Report Type: 
  Country: None (occurrence: None)
  Receive Date: 20051026
  Receipt Date: 20051010
  Transmission Date: 20060501
  Serious: Yes (Death, Other)
  Sender: FDA-Public Use
  Company Number: DSA_27232_2005

PATIENT
  Age: 81 Year
  Sex: Female
  Weight: 57.6068 kg

DRUGS (1)
  1. ATIVAN [Suspect]
     Dosage: 1 MG ONCE PO
     Route: 048
     Dates: start: 20050101, end: 20050101

REACTIONS (7)
  - DEPRESSED LEVEL OF CONSCIOUSNESS [None]
  - FLUSHING [None]
  - HYPOTENSION [None]
  - NEUROLEPTIC MALIGNANT SYNDROME [None]
  - PARKINSON'S DISEASE [None]
  - PYREXIA [None]
  - SPEECH DISORDER [None]
